FAERS Safety Report 8922354 (Version 3)
Quarter: 2014Q2

REPORT INFORMATION
  Report Type: Spontaneous
  Country: IT (occurrence: IT)
  Receive Date: 20121123
  Receipt Date: 20131018
  Transmission Date: 20141212
  Serious: Yes (Other)
  Sender: FDA-Public Use
  Company Number: IT-PFIZER INC-2012292037

PATIENT
  Age: 59 Year
  Sex: Male

DRUGS (6)
  1. MEDROL [Suspect]
     Indication: RHEUMATOID ARTHRITIS
     Dosage: 4 MG, 1X/DAY
     Route: 048
     Dates: start: 20110908, end: 20120907
  2. METHOTREXATE [Suspect]
     Indication: RHEUMATOID ARTHRITIS
     Dosage: 1 DF, WEEKLY
     Route: 030
     Dates: start: 20110908, end: 20120907
  3. BRUFEN [Suspect]
     Dosage: 1 DF, 1X/DAY
     Route: 048
     Dates: start: 20110908, end: 20120907
  4. PLAQUENIL [Suspect]
     Dosage: 200 MG, 1X/DAY
     Route: 048
     Dates: start: 20110908, end: 20120907
  5. LANSOPRAZOLE [Concomitant]
     Dosage: UNK
  6. FOLINA [Concomitant]
     Dosage: UNK

REACTIONS (5)
  - Vertigo [Not Recovered/Not Resolved]
  - Hyperhidrosis [Not Recovered/Not Resolved]
  - Abdominal pain upper [Not Recovered/Not Resolved]
  - Nausea [Not Recovered/Not Resolved]
  - Fatigue [Not Recovered/Not Resolved]
